FAERS Safety Report 4523614-7 (Version None)
Quarter: 2004Q4

REPORT INFORMATION
  Report Type: 
  Country: None (occurrence: None)
  Receive Date: 20041210
  Receipt Date: 20041210
  Transmission Date: 20050328
  Serious: Yes (Death)
  Sender: FDA-Public Use
  Company Number: None

PATIENT
  Age: 64 Year
  Sex: Female
  Weight: 58.0604 kg

DRUGS (10)
  1. BCNU 489 MG DAY( -7) [Suspect]
     Indication: NON-HODGKIN'S LYMPHOMA RECURRENT
     Dosage: 489 MG IV -7
     Route: 042
     Dates: start: 20041115
  2. ETOPOSIDE [Suspect]
     Indication: NON-HODGKIN'S LYMPHOMA RECURRENT
     Dosage: 326 MG IV -6,-5,-4,-3
     Route: 042
     Dates: start: 20041116
  3. ETOPOSIDE [Suspect]
     Indication: NON-HODGKIN'S LYMPHOMA RECURRENT
     Dosage: 326 MG IV -6,-5,-4,-3
     Route: 042
     Dates: start: 20041117
  4. ETOPOSIDE [Suspect]
     Indication: NON-HODGKIN'S LYMPHOMA RECURRENT
     Dosage: 326 MG IV -6,-5,-4,-3
     Route: 042
     Dates: start: 20041118
  5. ETOPOSIDE [Suspect]
     Indication: NON-HODGKIN'S LYMPHOMA RECURRENT
     Dosage: 326 MG IV -6,-5,-4,-3
     Route: 042
     Dates: start: 20041119
  6. ARA-C 326MG Q 12 (DAYS -6,-5,-4,-3) [Suspect]
     Indication: NON-HODGKIN'S LYMPHOMA RECURRENT
     Dosage: 326MG Q 12 DAYS -6,-5,-4,-3
     Dates: start: 20041116
  7. ARA-C 326MG Q 12 (DAYS -6,-5,-4,-3) [Suspect]
     Indication: NON-HODGKIN'S LYMPHOMA RECURRENT
     Dosage: 326MG Q 12 DAYS -6,-5,-4,-3
     Dates: start: 20041117
  8. ARA-C 326MG Q 12 (DAYS -6,-5,-4,-3) [Suspect]
     Indication: NON-HODGKIN'S LYMPHOMA RECURRENT
     Dosage: 326MG Q 12 DAYS -6,-5,-4,-3
     Dates: start: 20041118
  9. ARA-C 326MG Q 12 (DAYS -6,-5,-4,-3) [Suspect]
     Indication: NON-HODGKIN'S LYMPHOMA RECURRENT
     Dosage: 326MG Q 12 DAYS -6,-5,-4,-3
     Dates: start: 20041119
  10. MELPHALAN 228 MG (DAYS -2) [Suspect]
     Indication: NON-HODGKIN'S LYMPHOMA RECURRENT
     Dosage: 228 MG -2
     Dates: start: 20041120

REACTIONS (11)
  - ACUTE RESPIRATORY DISTRESS SYNDROME [None]
  - BRONCHOALVEOLAR LAVAGE ABNORMAL [None]
  - CARDIAC FAILURE [None]
  - DIALYSIS [None]
  - ENTEROCOCCAL INFECTION [None]
  - HEPATIC FAILURE [None]
  - HYPOTENSION [None]
  - PATHOGEN RESISTANCE [None]
  - PNEUMONIA [None]
  - RENAL FAILURE [None]
  - SEPSIS [None]
